FAERS Safety Report 12139183 (Version 1)
Quarter: 2016Q1

REPORT INFORMATION
  Report Type: Spontaneous
  Country: US (occurrence: US)
  Receive Date: 20160302
  Receipt Date: 20160302
  Transmission Date: 20160526
  Serious: Yes (Hospitalization)
  Sender: FDA-Public Use
  Company Number: US-ANACOR-2016ANA00059

PATIENT
  Age: 80 Year
  Sex: Female
  Weight: 61.22 kg

DRUGS (6)
  1. ^BENICON^ [Concomitant]
  2. VYTORIN [Concomitant]
     Active Substance: EZETIMIBE\SIMVASTATIN
  3. UNSPECIFIED PILL(S) [Concomitant]
  4. UNSPECIFIED VITAMIN(S) [Concomitant]
  5. KERYDIN [Suspect]
     Active Substance: TAVABOROLE
     Indication: FUNGAL INFECTION
     Dosage: UNK, UP TO 3X/WEEK
     Route: 061
     Dates: end: 201602
  6. BABY ASPIRIN [Concomitant]
     Active Substance: ASPIRIN

REACTIONS (7)
  - Malaise [Unknown]
  - Tooth injury [None]
  - Syncope [Recovered/Resolved]
  - Fall [Recovered/Resolved]
  - Memory impairment [Not Recovered/Not Resolved]
  - Dyspnoea [Not Recovered/Not Resolved]
  - Inappropriate schedule of drug administration [Not Recovered/Not Resolved]

NARRATIVE: CASE EVENT DATE: 201602
